FAERS Safety Report 8555373-5 (Version None)
Quarter: 2012Q3

REPORT INFORMATION
  Report Type: 
  Country: None (occurrence: None)
  Receive Date: 20120731
  Receipt Date: 20120223
  Transmission Date: 20120928
  Serious: No
  Sender: FDA-Public Use
  Company Number: US-ASTRAZENECA-2011SE28129

PATIENT
  Age: 49 Year
  Sex: Male
  Weight: 90.7 kg

DRUGS (7)
  1. SEROQUEL XR [Suspect]
     Indication: ATTENTION DEFICIT/HYPERACTIVITY DISORDER
     Route: 048
  2. SEROQUEL XR [Suspect]
     Route: 048
  3. SEROQUEL XR [Suspect]
     Route: 048
  4. POLNAPIN [Concomitant]
     Indication: DEPRESSION
  5. LEXAPRO [Concomitant]
     Indication: DEPRESSION
  6. SEROQUEL XR [Suspect]
     Indication: BIPOLAR DISORDER
     Route: 048
  7. POLNAPIN [Concomitant]
     Indication: SLEEP DISORDER

REACTIONS (9)
  - AGORAPHOBIA [None]
  - OFF LABEL USE [None]
  - WEIGHT FLUCTUATION [None]
  - BIPOLAR DISORDER [None]
  - DRUG DOSE OMISSION [None]
  - DRUG DISPENSING ERROR [None]
  - SLEEP DISORDER [None]
  - INTERVERTEBRAL DISC DEGENERATION [None]
  - BODY HEIGHT DECREASED [None]
